FAERS Safety Report 18898776 (Version 1)
Quarter: 2021Q1

REPORT INFORMATION
  Report Type: Spontaneous
  Country: US (occurrence: US)
  Receive Date: 20210215
  Receipt Date: 20210215
  Transmission Date: 20210420
  Serious: Yes (Hospitalization, Other)
  Sender: FDA-Public Use
  Company Number: None

PATIENT
  Age: 75 Year
  Sex: Female
  Weight: 81 kg

DRUGS (1)
  1. TISAGENLECLEUCEL. [Suspect]
     Active Substance: TISAGENLECLEUCEL
     Indication: DIFFUSE LARGE B-CELL LYMPHOMA
     Dosage: ?          OTHER FREQUENCY:ONCE;?
     Dates: start: 20201207, end: 20201207

REACTIONS (8)
  - Cytokine release syndrome [None]
  - Neurotoxicity [None]
  - Myopathy [None]
  - Immune effector cell-associated neurotoxicity syndrome [None]
  - Acute kidney injury [None]
  - Dialysis [None]
  - Malnutrition [None]
  - Infection [None]

NARRATIVE: CASE EVENT DATE: 20201208
